FAERS Safety Report 9105989 (Version 1)
Quarter: 2013Q1

REPORT INFORMATION
  Report Type: Spontaneous
  Country: US (occurrence: US)
  Receive Date: 20130220
  Receipt Date: 20130220
  Transmission Date: 20140127
  Serious: Yes (Other)
  Sender: FDA-Public Use
  Company Number: US-ROCHE-1182435

PATIENT
  Sex: Female
  Weight: 59.02 kg

DRUGS (11)
  1. RITUXAN [Suspect]
     Indication: PRODUCT USED FOR UNKNOWN INDICATION
     Route: 065
  2. ASPIRIN [Concomitant]
     Dosage: 1 TABLET
     Route: 048
  3. ATENOLOL [Concomitant]
     Dosage: 1 TABLET
     Route: 048
     Dates: end: 20130113
  4. FOLIC ACID [Concomitant]
     Dosage: 1 TABLET
     Route: 048
     Dates: start: 20120203, end: 20130213
  5. METHOTREXATE SODIUM [Concomitant]
     Dosage: 3 TABLET
     Route: 048
     Dates: start: 20120902
  6. PRAVACHOL [Concomitant]
     Dosage: 1 TABLET
     Route: 048
  7. SYNTHROID [Concomitant]
     Dosage: 1 TABLET
     Route: 048
     Dates: start: 20120503, end: 20130113
  8. TRAZODONE [Concomitant]
     Route: 048
  9. TOPAMAX [Concomitant]
  10. COMPAZINE [Concomitant]
     Route: 048
  11. PREDNISONE [Concomitant]
     Dosage: 1 TABLET
     Route: 048

REACTIONS (3)
  - Infusion related reaction [Not Recovered/Not Resolved]
  - Dizziness [Not Recovered/Not Resolved]
  - Nodal arrhythmia [Not Recovered/Not Resolved]
